FAERS Safety Report 6276171-1 (Version None)
Quarter: 2009Q3

REPORT INFORMATION
  Report Type: 
  Country: None (occurrence: None)
  Receive Date: 20090717
  Receipt Date: 20090717
  Transmission Date: 20100115
  Serious: Yes (Other)
  Sender: FDA-Public Use
  Company Number: None

PATIENT
  Sex: Female
  Weight: 63.5036 kg

DRUGS (2)
  1. ZETIA [Suspect]
     Indication: BLOOD CHOLESTEROL INCREASED
     Dosage: 10 MCG 1 PER DAY
     Dates: start: 20090101
  2. ZOCOR [Suspect]
     Indication: BLOOD CHOLESTEROL INCREASED
     Dosage: 10 MCG 1 PER DAY
     Dates: start: 20080101

REACTIONS (5)
  - CEREBROVASCULAR ACCIDENT [None]
  - DIARRHOEA [None]
  - HEADACHE [None]
  - MYALGIA [None]
  - MYOCARDIAL INFARCTION [None]
